FAERS Safety Report 9123818 (Version 1)
Quarter: 2013Q1

REPORT INFORMATION
  Report Type: Spontaneous
  Country: US (occurrence: US)
  Receive Date: 20130227
  Receipt Date: 20130227
  Transmission Date: 20140127
  Serious: No
  Sender: FDA-Public Use
  Company Number: US-PFIZER INC-2013068779

PATIENT
  Sex: Female

DRUGS (6)
  1. GABAPENTIN [Suspect]
     Indication: NEURALGIA
     Dosage: 300 MG, 2X/DAY
     Route: 048
  2. ADVIL LIQUIGEL [Suspect]
     Dosage: 800 MG AT A TIME
     Route: 048
     Dates: start: 20130223, end: 20130223
  3. SERTRALINE [Concomitant]
     Dosage: 100 MG, UNK
  4. CYCLOBENZAPRINE [Concomitant]
     Dosage: 10 MG, UNK
  5. TRAMADOL [Concomitant]
     Dosage: 50 MG, UNK
  6. MELOXICAM [Concomitant]
     Dosage: 15 MG, UNK

REACTIONS (3)
  - Incorrect dose administered [Recovered/Resolved]
  - Agitation [Unknown]
  - Restlessness [Unknown]
